FAERS Safety Report 14184471 (Version 13)
Quarter: 2019Q1

REPORT INFORMATION
  Report Type: Spontaneous
  Country: PT (occurrence: PT)
  Receive Date: 20171113
  Receipt Date: 20190312
  Transmission Date: 20190417
  Serious: Yes (Other)
  Sender: FDA-Public Use
  Company Number: PHHY2017PT166150

PATIENT
  Age: 1 Month
  Sex: Female
  Weight: 2.4 kg

DRUGS (14)
  1. ELTROMBOPAG [Suspect]
     Active Substance: ELTROMBOPAG
     Indication: FOETAL EXPOSURE DURING PREGNANCY
     Dosage: MOTHER DOSE 50 MG, QD
     Route: 064
     Dates: start: 20170718, end: 201707
  2. ELTROMBOPAG [Suspect]
     Active Substance: ELTROMBOPAG
     Dosage: MOTHER DOSE 12.5 MG, QD
     Route: 064
     Dates: start: 20170804, end: 20170814
  3. DEXAMETHASONE. [Suspect]
     Active Substance: DEXAMETHASONE
     Indication: FOETAL EXPOSURE DURING PREGNANCY
     Dosage: MOTHER DOSE 6 MG, QID
     Route: 064
  4. NIFEDIPINE. [Suspect]
     Active Substance: NIFEDIPINE
     Indication: FOETAL EXPOSURE DURING PREGNANCY
     Dosage: UNK
     Route: 064
  5. MISOPROSTOL. [Suspect]
     Active Substance: MISOPROSTOL
     Indication: FOETAL EXPOSURE DURING PREGNANCY
     Dosage: UNK
     Route: 065
  6. PREDNISOLONE. [Suspect]
     Active Substance: PREDNISOLONE
     Indication: FOETAL EXPOSURE DURING PREGNANCY
     Dosage: MOTHER DOSE 80 MG, QD
     Route: 064
  7. PREDNISOLONE. [Suspect]
     Active Substance: PREDNISOLONE
     Dosage: MOTHER DOSE 160 MG, QD
     Route: 064
  8. PREDNISOLONE. [Suspect]
     Active Substance: PREDNISOLONE
     Dosage: MOTHER DOSE 40 MG, QD
     Route: 064
  9. AZATHIOPRIN [Suspect]
     Active Substance: AZATHIOPRINE
     Indication: FOETAL EXPOSURE DURING PREGNANCY
     Dosage: MOTHER DOSE 150 MG, QD
     Route: 064
     Dates: start: 20170712, end: 20170731
  10. METHYLPREDNISOLONE. [Suspect]
     Active Substance: METHYLPREDNISOLONE
     Indication: FOETAL EXPOSURE DURING PREGNANCY
     Dosage: 90 MG, QD (MOTHER DOSE)
     Route: 064
  11. ELTROMBOPAG [Suspect]
     Active Substance: ELTROMBOPAG
     Dosage: MOTHER DOSE 25 MG, QD
     Route: 064
     Dates: start: 20170731, end: 2017
  12. PREDNISOLONE. [Suspect]
     Active Substance: PREDNISOLONE
     Dosage: MOTHER DOSE 120 MG, QD
     Route: 064
  13. ENOXAPARIN [Suspect]
     Active Substance: ENOXAPARIN
     Indication: FOETAL EXPOSURE DURING PREGNANCY
     Dosage: 120 MG, QD (1 MG/KG/DAY)
     Route: 064
  14. PANTOPRAZOLE [Suspect]
     Active Substance: PANTOPRAZOLE
     Indication: FOETAL EXPOSURE DURING PREGNANCY
     Dosage: MOTHER DOSE 20 MG, QD
     Route: 064

REACTIONS (3)
  - Jaundice neonatal [Unknown]
  - Premature baby [Unknown]
  - Foetal exposure during delivery [Unknown]
